FAERS Safety Report 8299545 (Version 2)
Quarter: 2013Q4

REPORT INFORMATION
  Report Type: Spontaneous
  Country: US (occurrence: US)
  Receive Date: 20111219
  Receipt Date: 20131223
  Transmission Date: 20140711
  Serious: Yes (Other)
  Sender: FDA-Public Use
  Company Number: US-BAYER-2011-120299

PATIENT
  Age: 32 Year
  Sex: Female

DRUGS (5)
  1. YAZ [Suspect]
     Dosage: UNK
     Dates: start: 2003, end: 200910
  2. YASMIN [Suspect]
     Indication: CONTRACEPTION
     Dosage: UNK
     Dates: start: 2003, end: 200910
  3. ZANTAC [Concomitant]
     Route: 048
  4. ACIPHEX [Concomitant]
     Dosage: 20 MG, UNK
     Route: 048
  5. SUDAFED [Concomitant]
     Route: 048

REACTIONS (9)
  - Gallbladder pain [None]
  - Cholecystitis chronic [None]
  - Post cholecystectomy syndrome [None]
  - Injury [None]
  - Pain [None]
  - Anxiety [None]
  - Anhedonia [None]
  - Gastrointestinal disorder [None]
  - Psychological trauma [None]
